FAERS Safety Report 5518191-8 (Version None)
Quarter: 2007Q4

REPORT INFORMATION
  Report Type: 
  Country: None (occurrence: None)
  Receive Date: 20071113
  Receipt Date: 20071113
  Transmission Date: 20080405
  Serious: Yes (Other)
  Sender: FDA-Public Use
  Company Number: None

PATIENT
  Sex: Male
  Weight: 45.3597 kg

DRUGS (2)
  1. DAYTRANA [Suspect]
     Indication: ATTENTION DEFICIT/HYPERACTIVITY DISORDER
     Dosage: 20 MG QAM TRANSDERMAL
     Route: 062
     Dates: start: 20070705, end: 20070908
  2. DAYTRANA [Suspect]
     Indication: ATTENTION DEFICIT/HYPERACTIVITY DISORDER
     Dosage: 20 MG QAM TRANSDERMAL
     Route: 062
     Dates: start: 20070916, end: 20070925

REACTIONS (6)
  - APPLICATION SITE IRRITATION [None]
  - DERMATITIS CONTACT [None]
  - RASH [None]
  - RASH PUSTULAR [None]
  - SCAB [None]
  - SKIN DISORDER [None]
